FAERS Safety Report 25105631 (Version 1)
Quarter: 2025Q1

REPORT INFORMATION
  Report Type: Spontaneous
  Country: US (occurrence: US)
  Receive Date: 20250321
  Receipt Date: 20250321
  Transmission Date: 20250409
  Serious: No
  Sender: ESPERION THERAPEUTICS
  Company Number: US-ESPERIONTHERAPEUTICS-2024USA00453

PATIENT
  Age: 83 Year
  Sex: Female
  Weight: 71.202 kg

DRUGS (2)
  1. NEXLETOL [Suspect]
     Active Substance: BEMPEDOIC ACID
     Indication: Low density lipoprotein increased
     Route: 048
     Dates: start: 20231222, end: 20240122
  2. SYNTHROID [Concomitant]
     Active Substance: LEVOTHYROXINE SODIUM
     Route: 065

REACTIONS (8)
  - Pain [Recovering/Resolving]
  - Arthritis [Recovering/Resolving]
  - Limb discomfort [Recovering/Resolving]
  - Insomnia [Recovering/Resolving]
  - Restless legs syndrome [Recovering/Resolving]
  - Gait disturbance [Recovering/Resolving]
  - Off label use [Recovered/Resolved]
  - Pain in extremity [Recovering/Resolving]

NARRATIVE: CASE EVENT DATE: 20231222
